FAERS Safety Report 21021669 (Version 1)
Quarter: 2022Q2

REPORT INFORMATION
  Report Type: Report from Study
  Country: AT (occurrence: AT)
  Receive Date: 20220629
  Receipt Date: 20220629
  Transmission Date: 20220721
  Serious: Yes (Hospitalization, Other)
  Sender: FDA-Public Use
  Company Number: AT-JCAR017-FOL-001-4501005-20211227-0003SG

PATIENT
  Age: 71 Year
  Sex: Male
  Weight: 88 kg

DRUGS (48)
  1. LISOCABTAGENE MARALEUCEL [Suspect]
     Active Substance: LISOCABTAGENE MARALEUCEL
     Indication: Marginal zone lymphoma
     Dosage: FREQUENCY TEXT: ONCE?100 10^6 CAR+ T CELLS X ONCE
     Route: 042
     Dates: start: 20211210, end: 20211210
  2. CYCLOPHOSPHAMIDE [Suspect]
     Active Substance: CYCLOPHOSPHAMIDE
     Indication: Marginal zone lymphoma
     Dosage: FREQUENCY TEXT: ONCE?300 MG X ONCE
     Route: 042
     Dates: start: 20211201, end: 20211201
  3. CYCLOPHOSPHAMIDE [Suspect]
     Active Substance: CYCLOPHOSPHAMIDE
     Dosage: FREQUENCY TEXT: ONCE?300 MG X ONCE
     Route: 042
     Dates: start: 20211202, end: 20211202
  4. CYCLOPHOSPHAMIDE [Suspect]
     Active Substance: CYCLOPHOSPHAMIDE
     Dosage: FREQUENCY TEXT: ONCE?300 MG X ONCE
     Route: 042
     Dates: start: 20211206, end: 20211206
  5. FLUDARABINE [Suspect]
     Active Substance: FLUDARABINE PHOSPHATE
     Indication: Marginal zone lymphoma
     Dosage: FREQUENCY TEXT: ONCE?30 MG X ONCE
     Route: 042
     Dates: start: 20211201, end: 20211201
  6. FLUDARABINE [Suspect]
     Active Substance: FLUDARABINE PHOSPHATE
     Dosage: FREQUENCY TEXT: ONCE?30 MG X ONCE
     Route: 042
     Dates: start: 20211202, end: 20211202
  7. FLUDARABINE [Suspect]
     Active Substance: FLUDARABINE PHOSPHATE
     Dosage: FREQUENCY TEXT: ONCE?30 MG X ONCE
     Route: 042
     Dates: start: 20211206, end: 20211206
  8. DEXAMETHASONE [Concomitant]
     Active Substance: DEXAMETHASONE
     Indication: Premedication
     Dosage: 12 MG?FREQUENCY : ONCE
     Route: 048
     Dates: start: 20211201, end: 20211202
  9. DEXAMETHASONE [Concomitant]
     Active Substance: DEXAMETHASONE
     Dosage: 8 MG?FREQUENCY : ONCE
     Route: 042
     Dates: start: 20211206, end: 20211206
  10. ASPIRIN [Concomitant]
     Active Substance: ASPIRIN
     Indication: Prophylaxis
     Dosage: 100 MG
     Route: 048
     Dates: start: 2007, end: 20211217
  11. ALLOPURINOL [Concomitant]
     Active Substance: ALLOPURINOL
     Indication: Prophylaxis
     Dosage: 150 MG
     Route: 048
     Dates: start: 2007, end: 20211230
  12. EMPAGLIFLOZIN [Concomitant]
     Active Substance: EMPAGLIFLOZIN
     Indication: Diabetes mellitus
     Dosage: 10 MG
     Route: 048
     Dates: start: 2012, end: 20220105
  13. INSULIN GLARGINE [Concomitant]
     Active Substance: INSULIN GLARGINE
     Indication: Diabetes mellitus
     Dosage: 16 IU
     Route: 003
     Dates: start: 2007
  14. DIPHENHYDRAMINE [Concomitant]
     Active Substance: DIPHENHYDRAMINE
     Indication: Prophylaxis
     Dosage: 1 AMPULE?FREQUENCY : ONCE
     Route: 042
     Dates: start: 20211210, end: 20211210
  15. DIPHENHYDRAMINE [Concomitant]
     Active Substance: DIPHENHYDRAMINE
     Indication: Premedication
     Dosage: 1 AMPULE?FREQUENCY : ONCE
     Route: 042
     Dates: start: 20211214, end: 20211214
  16. HUMAN IMMUNOGLOBULIN G [Concomitant]
     Active Substance: HUMAN IMMUNOGLOBULIN G
     Indication: Adverse event
     Dosage: 10 G?FREQUENCY : ONCE
     Route: 042
     Dates: start: 20211214, end: 20211214
  17. INSULIN ASPART [Concomitant]
     Active Substance: INSULIN ASPART
     Indication: Diabetes mellitus
     Dosage: 300 IU?FREQUENCY : OCCASIONAL
     Route: 058
     Dates: start: 20211207, end: 20220105
  18. INSULIN ASPART [Concomitant]
     Active Substance: INSULIN ASPART
     Dosage: 0.5 ML/H?FREQUENCY : INTERMITTENT
     Route: 042
     Dates: start: 20220105
  19. MESNA [Concomitant]
     Active Substance: MESNA
     Indication: Prophylaxis
     Dosage: 800 MG?FREQUENCY : ONCE
     Route: 042
     Dates: start: 20211206, end: 20211206
  20. ONDANSETRON [Concomitant]
     Active Substance: ONDANSETRON
     Indication: Premedication
     Dosage: 8 MG?FREQUENCY : ONCE
     Route: 048
     Dates: start: 20211201, end: 20211202
  21. ONDANSETRON [Concomitant]
     Active Substance: ONDANSETRON
     Dosage: 8 MG?FREQUENCY : ONCE
     Route: 042
     Dates: start: 20211206, end: 20211206
  22. PANTOPRAZOLE [Concomitant]
     Active Substance: PANTOPRAZOLE
     Indication: Prophylaxis
     Dosage: 40 MG
     Route: 048
     Dates: start: 20211216, end: 20220114
  23. POSACONAZOLE [Concomitant]
     Active Substance: POSACONAZOLE
     Indication: Prophylaxis
     Dosage: 100 MG
     Route: 048
     Dates: start: 20211214, end: 20220104
  24. POSACONAZOLE [Concomitant]
     Active Substance: POSACONAZOLE
     Indication: Adverse event
     Dosage: 100 MG
     Route: 048
     Dates: start: 20211223, end: 20220113
  25. POTASSIUM BICARBONATE [Concomitant]
     Active Substance: POTASSIUM BICARBONATE
     Indication: Prophylaxis
     Dosage: 2 SACHET?FREQUENCY : ONCE
     Route: 048
     Dates: start: 20211215, end: 20211215
  26. POTASSIUM MALATE [Concomitant]
     Indication: Adverse event
     Dosage: 50 MMOL?FREQUENCY : ONCE
     Route: 042
     Dates: start: 20211222, end: 20211222
  27. PREGABALIN [Concomitant]
     Active Substance: PREGABALIN
     Indication: Peripheral sensory neuropathy
     Dosage: 25 MG
     Route: 048
     Dates: start: 20211211, end: 20220110
  28. SITAGLIPTIN [Concomitant]
     Active Substance: SITAGLIPTIN
     Indication: Diabetes mellitus
     Dosage: 50 MG
     Route: 048
     Dates: start: 20211214, end: 20211223
  29. TROSPIUM CHLORIDE [Concomitant]
     Active Substance: TROSPIUM CHLORIDE
     Indication: Prophylaxis
     Dosage: 15 MG
     Route: 048
     Dates: start: 20211220, end: 20220105
  30. VALACYCLOVIR HYDROCHLORIDE [Concomitant]
     Active Substance: VALACYCLOVIR HYDROCHLORIDE
     Indication: Prophylaxis
     Dosage: 500 MG
     Route: 048
     Dates: start: 20211214, end: 20211221
  31. VALACYCLOVIR HYDROCHLORIDE [Concomitant]
     Active Substance: VALACYCLOVIR HYDROCHLORIDE
     Indication: Infection prophylaxis
     Dosage: 500 MG
     Route: 048
     Dates: start: 20211222, end: 20220114
  32. ROSUVASTATIN [Concomitant]
     Active Substance: ROSUVASTATIN
     Indication: Prophylaxis
     Dosage: 10 MG X 4 X 1 DAYS
     Dates: start: 2007, end: 20211214
  33. ROSUVASTATIN [Concomitant]
     Active Substance: ROSUVASTATIN
     Dosage: 10 MG X 4 X 1 DAYS
     Dates: start: 20211223, end: 20220105
  34. METFORMIN\SITAGLIPTIN [Concomitant]
     Active Substance: METFORMIN\SITAGLIPTIN
     Indication: Diabetes mellitus
     Dosage: 50/1000 MG X 2 X 1 DAYS
     Route: 048
     Dates: start: 2007, end: 20211214
  35. METFORMIN\SITAGLIPTIN [Concomitant]
     Active Substance: METFORMIN\SITAGLIPTIN
     Dosage: 50/1000 MG X 2 X 1 DAYS
     Route: 048
     Dates: start: 20211218, end: 20220105
  36. KALIUMHYDROGENCARBONAT [Concomitant]
     Indication: Prophylaxis
     Dosage: FREQUENCY TEXT: ONCE?2 SACHET X ONCE
     Dates: start: 20211215, end: 20211215
  37. MESNA [Concomitant]
     Active Substance: MESNA
     Indication: Prophylaxis
     Dosage: FREQUENCY TEXT: ONCE?800 MG X ONCE
     Route: 042
     Dates: start: 20211206, end: 20211206
  38. PANTOPRAZOLE SODIUM [Concomitant]
     Active Substance: PANTOPRAZOLE SODIUM
     Indication: Prophylaxis
     Dosage: 40 MG X 1 X 1 DAYS
     Route: 042
     Dates: start: 20220121
  39. ACETAMINOPHEN [Concomitant]
     Active Substance: ACETAMINOPHEN
     Indication: Premedication
     Dosage: FREQUENCY TEXT: ONCE?1 G X ONCE
     Route: 042
     Dates: start: 20211210, end: 20211210
  40. ACETAMINOPHEN [Concomitant]
     Active Substance: ACETAMINOPHEN
     Indication: Adverse event
     Dosage: FREQUENCY TEXT: OCCASIONAL?1 G X OCCASIONAL
     Dates: start: 20211211, end: 20211214
  41. PIPERACILLIN AND TAZOBACTAM [Concomitant]
     Active Substance: PIPERACILLIN SODIUM\TAZOBACTAM SODIUM
     Indication: Prophylaxis
     Dosage: FREQUENCY TEXT: ONCE?4.5 MG X ONCE
     Route: 042
     Dates: start: 20211210, end: 20211210
  42. PIPERACILLIN AND TAZOBACTAM [Concomitant]
     Active Substance: PIPERACILLIN SODIUM\TAZOBACTAM SODIUM
     Indication: Adverse event
     Dosage: 4.5 MG X 2 X 1 DAYS
     Route: 042
     Dates: start: 20211212, end: 20211212
  43. PIPERACILLIN AND TAZOBACTAM [Concomitant]
     Active Substance: PIPERACILLIN SODIUM\TAZOBACTAM SODIUM
     Dosage: 4.5 MG X 3 X 1 DAYS
     Route: 042
     Dates: start: 20211213, end: 20211219
  44. PIPERACILLIN AND TAZOBACTAM [Concomitant]
     Active Substance: PIPERACILLIN SODIUM\TAZOBACTAM SODIUM
     Dosage: FREQUENCY TEXT: CONTINUOUS?4.5 G X CONTINUOUS
     Route: 042
     Dates: start: 20220120
  45. RINGERS SOLUTION [Concomitant]
     Active Substance: CALCIUM CHLORIDE\POTASSIUM CHLORIDE\SODIUM CHLORIDE
     Indication: Prophylaxis
     Dosage: FREQUENCY TEXT: OCCASIONAL?1000 ML X OCCASIONAL
     Route: 042
     Dates: start: 20211206, end: 20211209
  46. RINGERS SOLUTION [Concomitant]
     Active Substance: CALCIUM CHLORIDE\POTASSIUM CHLORIDE\SODIUM CHLORIDE
     Indication: Product used for unknown indication
     Dosage: FREQUENCY TEXT: CONTINUOUS?40 ML/H X CONTINUOUS
     Route: 042
     Dates: start: 20211210, end: 20211221
  47. RINGERS SOLUTION [Concomitant]
     Active Substance: CALCIUM CHLORIDE\POTASSIUM CHLORIDE\SODIUM CHLORIDE
     Dosage: FREQUENCY TEXT: ONCE?500 ML X ONCE
     Route: 042
     Dates: start: 20211222, end: 20211222
  48. SODIUM CHLORIDE [Concomitant]
     Active Substance: SODIUM CHLORIDE
     Indication: Vehicle solution use
     Dosage: FREQUENCY TEXT: ONCE?1000 ML X ONCE
     Route: 042
     Dates: start: 20211201, end: 20211202

REACTIONS (1)
  - Neurotoxicity [Not Recovered/Not Resolved]

NARRATIVE: CASE EVENT DATE: 20211225
